FAERS Safety Report 6228987-5 (Version None)
Quarter: 2009Q2

REPORT INFORMATION
  Report Type: 
  Country: None (occurrence: None)
  Receive Date: 20090615
  Receipt Date: 20090605
  Transmission Date: 20091009
  Serious: Yes (Hospitalization)
  Sender: FDA-Public Use
  Company Number: IT-JNJFOC-20090504106

PATIENT
  Sex: Male

DRUGS (4)
  1. REOPRO [Suspect]
     Indication: CORONARY ANGIOPLASTY
     Route: 042
  2. ACETYLSALICYLIC ACID SRT [Concomitant]
     Indication: DRUG USE FOR UNKNOWN INDICATION
  3. HEPARIN CALCIUM [Concomitant]
     Indication: DRUG USE FOR UNKNOWN INDICATION
  4. PLAVIX [Concomitant]
     Indication: DRUG USE FOR UNKNOWN INDICATION

REACTIONS (3)
  - HAEMOLYSIS [None]
  - LIVER FUNCTION TEST ABNORMAL [None]
  - THROMBOCYTOPENIA [None]
